FAERS Safety Report 25829459 (Version 1)
Quarter: 2025Q3

REPORT INFORMATION
  Report Type: Report from Study
  Country: CA (occurrence: CA)
  Receive Date: 20250922
  Receipt Date: 20250922
  Transmission Date: 20251021
  Serious: Yes (Hospitalization, Other)
  Sender: CSL BEHRING
  Company Number: CA-BEH-2025198329

PATIENT
  Age: 50 Year
  Sex: Female
  Weight: 109 kg

DRUGS (23)
  1. BERINERT [Suspect]
     Active Substance: HUMAN C1-ESTERASE INHIBITOR
     Indication: Hereditary angioedema
     Route: 058
     Dates: start: 20210601
  2. BERINERT [Suspect]
     Active Substance: HUMAN C1-ESTERASE INHIBITOR
     Indication: Prophylaxis
     Dosage: 6000 IU, QOD Q2 DAYS
     Route: 058
     Dates: start: 20210601
  3. BERINERT [Suspect]
     Active Substance: HUMAN C1-ESTERASE INHIBITOR
     Indication: Prophylaxis
     Dosage: 6000 IU, QOD (Q2 DAYS)
     Route: 058
     Dates: start: 20210601
  4. BERINERT [Suspect]
     Active Substance: HUMAN C1-ESTERASE INHIBITOR
     Dosage: 6000 IU, TIW
     Route: 058
     Dates: start: 20210601
  5. BERINERT [Suspect]
     Active Substance: HUMAN C1-ESTERASE INHIBITOR
     Dosage: 6000 IU, TIW
     Route: 058
     Dates: start: 20210601
  6. BERINERT [Suspect]
     Active Substance: HUMAN C1-ESTERASE INHIBITOR
     Dosage: 6000 IU, TIW
     Route: 058
     Dates: start: 20210601
  7. ARIPIPRAZOLE [Concomitant]
     Active Substance: ARIPIPRAZOLE
     Indication: Product used for unknown indication
     Dosage: 15 MG, QD
     Route: 065
  8. LEVOTHYROXINE SODIUM [Concomitant]
     Active Substance: LEVOTHYROXINE SODIUM
     Indication: Product used for unknown indication
     Dosage: 112 ?G, QD
     Route: 065
  9. QUETIAPINE FUMARATE [Concomitant]
     Active Substance: QUETIAPINE FUMARATE
     Indication: Product used for unknown indication
     Dosage: 200 MG, OD
     Route: 065
  10. QUETIAPINE FUMARATE [Concomitant]
     Active Substance: QUETIAPINE FUMARATE
  11. HYDROCHLOROTHIAZIDE [Concomitant]
     Active Substance: HYDROCHLOROTHIAZIDE
     Dosage: 25 MG, OD
  12. GABAPENTIN [Concomitant]
     Active Substance: GABAPENTIN
  13. RIVAROXABAN [Concomitant]
     Active Substance: RIVAROXABAN
     Dosage: 20 MG, OD
  14. ZOPICLONE [Concomitant]
     Active Substance: ZOPICLONE
  15. NORTRIPTYLINE HYDROCHLORIDE [Concomitant]
     Active Substance: NORTRIPTYLINE HYDROCHLORIDE
  16. ROSUVASTATIN CALCIUM [Concomitant]
     Active Substance: ROSUVASTATIN CALCIUM
     Dosage: 40 MG, OD
  17. OZEMPIC [Concomitant]
     Active Substance: SEMAGLUTIDE
     Dosage: UNK, QW
  18. HUMALOG [Concomitant]
     Active Substance: INSULIN LISPRO
  19. BASAGLAR [Concomitant]
     Active Substance: INSULIN GLARGINE
  20. EZETIMIBE [Concomitant]
     Active Substance: EZETIMIBE
     Dosage: 10 MG, OD
  21. DAPAGLIFLOZIN [Concomitant]
     Active Substance: DAPAGLIFLOZIN
     Dosage: 10 MG, OD
  22. TYLENOL [Concomitant]
     Active Substance: ACETAMINOPHEN
  23. ATIVAN [Concomitant]
     Active Substance: LORAZEPAM

REACTIONS (23)
  - Hereditary angioedema [Unknown]
  - Hereditary angioedema [Not Recovered/Not Resolved]
  - Hereditary angioedema [Unknown]
  - Hereditary angioedema [Unknown]
  - Hereditary angioedema [Recovering/Resolving]
  - Hereditary angioedema [Unknown]
  - Somnolence [Unknown]
  - Flushing [Unknown]
  - Abnormal behaviour [Unknown]
  - Infection [Unknown]
  - Transient ischaemic attack [Unknown]
  - Mental impairment [Unknown]
  - Gastrointestinal pain [Unknown]
  - Fear of injection [Unknown]
  - Nausea [Unknown]
  - Abdominal pain upper [Unknown]
  - Abdominal pain [Unknown]
  - Vomiting [Unknown]
  - Product use complaint [Unknown]
  - Weight decreased [Unknown]
  - Dysphagia [Recovering/Resolving]
  - Product dose omission issue [Recovering/Resolving]
  - Unevaluable event [Unknown]

NARRATIVE: CASE EVENT DATE: 20250228
